FAERS Safety Report 14487872 (Version 1)
Quarter: 2018Q1

REPORT INFORMATION
  Report Type: Spontaneous
  Country: DE (occurrence: DE)
  Receive Date: 20180205
  Receipt Date: 20180205
  Transmission Date: 20180509
  Serious: Yes (Other)
  Sender: FDA-Public Use
  Company Number: DE-TEVA-2018-DE-852206

PATIENT
  Sex: Female

DRUGS (3)
  1. CAPECITABINE. [Concomitant]
     Active Substance: CAPECITABINE
     Indication: INVASIVE DUCTAL BREAST CARCINOMA
     Dosage: 70 %, UNK
     Route: 065
     Dates: start: 2014, end: 2016
  2. LETROZOLE. [Suspect]
     Active Substance: LETROZOLE
     Indication: INVASIVE DUCTAL BREAST CARCINOMA
     Dosage: UNK
     Route: 065
     Dates: start: 2014, end: 2014
  3. AFINITOR [Suspect]
     Active Substance: EVEROLIMUS
     Indication: INVASIVE DUCTAL BREAST CARCINOMA
     Dosage: 05 MG, UNK
     Route: 065
     Dates: start: 2014, end: 2014

REACTIONS (8)
  - Fatigue [Unknown]
  - Metastases to liver [Unknown]
  - Pneumonitis [Unknown]
  - Metastases to spine [Unknown]
  - Abdominal pain upper [Unknown]
  - Metastases to thorax [Unknown]
  - Toxicity to various agents [Unknown]
  - Transaminases abnormal [Unknown]

NARRATIVE: CASE EVENT DATE: 2014
